FAERS Safety Report 5199170-X (Version None)
Quarter: 2007Q1

REPORT INFORMATION
  Report Type: 
  Country: None (occurrence: None)
  Receive Date: 20070104
  Receipt Date: 20061227
  Transmission Date: 20070707
  Serious: Yes (Hospitalization)
  Sender: FDA-Public Use
  Company Number: PHRM2006DZ03429

PATIENT
  Age: 44 Year
  Sex: Male

DRUGS (1)
  1. LESCOL [Suspect]
     Dosage: 40 MG, BID
     Route: 048

REACTIONS (4)
  - HEPATITIS VIRAL [None]
  - JAUNDICE [None]
  - PRURITUS [None]
  - TRANSAMINASES INCREASED [None]
